FAERS Safety Report 5561065-7 (Version None)
Quarter: 2007Q4

REPORT INFORMATION
  Report Type: 
  Country: None (occurrence: None)
  Receive Date: 20071215
  Receipt Date: 20071101
  Transmission Date: 20080405
  Serious: No
  Sender: FDA-Public Use
  Company Number: US-AMGEN-KDL247874

PATIENT
  Sex: Female

DRUGS (1)
  1. ENBREL [Suspect]
     Indication: RHEUMATOID ARTHRITIS
     Route: 058
     Dates: start: 20070812

REACTIONS (6)
  - COUGH [None]
  - DRY THROAT [None]
  - EAR PAIN [None]
  - HEADACHE [None]
  - MIGRAINE [None]
  - PHARYNGOLARYNGEAL PAIN [None]
